FAERS Safety Report 8663301 (Version 2)
Quarter: 2012Q4

REPORT INFORMATION
  Report Type: 
  Country: DE (occurrence: DE)
  Receive Date: 20120713
  Receipt Date: 20121019
  Transmission Date: 20130627
  Serious: Yes (Other)
  Sender: FDA-Public Use
  Company Number: DE-ASTELLAS-2012US006093

PATIENT
  Age: 54 Year
  Sex: Male
  Weight: 70 kg

DRUGS (4)
  1. TARCEVA [Suspect]
     Indication: PANCREATIC CARCINOMA
     Dosage: 150 mg, UID/QD
     Route: 048
     Dates: start: 20120113, end: 20120614
  2. GEMZAR [Suspect]
     Indication: PANCREATIC CARCINOMA METASTATIC
     Dosage: 1000 mg/m2, Weekly
     Route: 042
     Dates: start: 20111110, end: 20120830
  3. GRANISETRON [Concomitant]
     Indication: PRODUCT USED FOR UNKNOWN INDICATION
     Dosage: 1 mg, Weekly
     Route: 042
     Dates: start: 20111110
  4. TARGIN [Concomitant]
     Indication: PRODUCT USED FOR UNKNOWN INDICATION
     Dosage: 20 mg, bid
     Route: 048
     Dates: start: 201110

REACTIONS (4)
  - Incorrect dose administered [Unknown]
  - Impaired healing [Not Recovered/Not Resolved]
  - Ulcer [Recovering/Resolving]
  - Staphylococcal infection [Recovering/Resolving]
